FAERS Safety Report 24104853 (Version 1)
Quarter: 2024Q3

REPORT INFORMATION
  Report Type: Spontaneous
  Country: US (occurrence: None)
  Receive Date: 20240717
  Receipt Date: 20240717
  Transmission Date: 20241016
  Serious: Yes (Hospitalization)
  Sender: Public
  Company Number: None

PATIENT
  Sex: Male

DRUGS (1)
  1. MAYZENT [Suspect]
     Active Substance: SIPONIMOD
     Indication: Multiple sclerosis
     Dosage: FREQUENCY : EVERY OTHER DAY;?
     Route: 048
     Dates: start: 202307

REACTIONS (3)
  - Multiple sclerosis relapse [None]
  - Asthenia [None]
  - Confusional state [None]
